FAERS Safety Report 5803562-2 (Version None)
Quarter: 2008Q3

REPORT INFORMATION
  Report Type: 
  Country: None (occurrence: None)
  Receive Date: 20080703
  Receipt Date: 20080626
  Transmission Date: 20090109
  Serious: Yes (Hospitalization, Other)
  Sender: FDA-Public Use
  Company Number: 50020

PATIENT
  Age: 67 Year
  Sex: Female
  Weight: 80 kg

DRUGS (1)
  1. ADRIAMYCIN PFS [Suspect]
     Indication: SARCOMA
     Dosage: 142MG (75MG/M2, ONCE); IVI
     Route: 042
     Dates: start: 20080528

REACTIONS (5)
  - CHEST PAIN [None]
  - CONFUSIONAL STATE [None]
  - DYSPNOEA [None]
  - HYPONATRAEMIA [None]
  - LETHARGY [None]
